FAERS Safety Report 8062411-5 (Version None)
Quarter: 2012Q1

REPORT INFORMATION
  Report Type: 
  Country: None (occurrence: None)
  Receive Date: 20120123
  Receipt Date: 20120110
  Transmission Date: 20120608
  Serious: Yes (Death)
  Sender: FDA-Public Use
  Company Number: FR-ACTELION-A-CH2012-59466

PATIENT

DRUGS (1)
  1. TRACLEER [Suspect]
     Indication: SCLERODERMA RENAL CRISIS
     Dosage: UNK
     Route: 048

REACTIONS (2)
  - MENINGORRHAGIA [None]
  - MENINGIOMA [None]
